FAERS Safety Report 5191053-4 (Version None)
Quarter: 2006Q4

REPORT INFORMATION
  Report Type: 
  Country: None (occurrence: None)
  Receive Date: 20061226
  Receipt Date: 20050707
  Transmission Date: 20070319
  Serious: Yes (Life-Threatening, Hospitalization)
  Sender: FDA-Public Use
  Company Number: AT-BRISTOL-MYERS SQUIBB COMPANY-13032669

PATIENT
  Age: 77 Year
  Sex: Male

DRUGS (12)
  1. CETUXIMAB [Suspect]
     Indication: COLORECTAL CANCER METASTATIC
     Dosage: DOSE: 400 MG/M2-15 MINS INTO INFUSION, EVENT OCCURRED. ACTUAL DOSE ADM NOT REPORTED.
     Route: 041
     Dates: start: 20050705, end: 20050705
  2. IRINOTECAN HCL [Suspect]
     Indication: COLORECTAL CANCER METASTATIC
     Route: 042
     Dates: start: 20050727, end: 20050727
  3. FOLINIC ACID [Suspect]
     Indication: COLORECTAL CANCER METASTATIC
     Route: 042
     Dates: start: 20050727, end: 20050727
  4. FLUOROURACIL [Suspect]
     Indication: COLORECTAL CANCER METASTATIC
     Route: 042
     Dates: start: 20050727, end: 20050727
  5. LISINOPRIL [Concomitant]
  6. HYDROCHLOROTHIAZIDE [Concomitant]
  7. BISOPROLOL FUMARATE [Concomitant]
  8. METFORMIN HCL [Concomitant]
  9. DOXAZOSIN MESYLATE [Concomitant]
  10. LANSOPRAZOLE [Concomitant]
  11. INSULIN [Concomitant]
  12. DALTEPARIN SODIUM [Concomitant]

REACTIONS (3)
  - HYPERSENSITIVITY [None]
  - PNEUMONIA [None]
  - SHOCK [None]
